FAERS Safety Report 15155043 (Version 2)
Quarter: 2018Q3

REPORT INFORMATION
  Report Type: Spontaneous
  Country: CH (occurrence: CH)
  Receive Date: 20180717
  Receipt Date: 20180719
  Transmission Date: 20181010
  Serious: Yes (Other)
  Sender: FDA-Public Use
  Company Number: -ASTRAZENECA-2018SE88884

PATIENT
  Age: 21955 Day
  Sex: Female

DRUGS (24)
  1. SAROTEN [Suspect]
     Active Substance: AMITRIPTYLINE
     Dosage: 50.0MG UNKNOWN
     Route: 048
     Dates: end: 20180610
  2. EUTHYROX [Concomitant]
     Active Substance: LEVOTHYROXINE SODIUM
  3. FOLIC ACID. [Concomitant]
     Active Substance: FOLIC ACID
  4. ALENDRONATE [Concomitant]
     Active Substance: ALENDRONATE SODIUM
  5. NEXIUM [Suspect]
     Active Substance: ESOMEPRAZOLE MAGNESIUM
     Dosage: 20.0MG UNKNOWN
     Route: 048
     Dates: start: 20180611
  6. TOVIAZ [Suspect]
     Active Substance: FESOTERODINE FUMARATE
     Dosage: 4.0MG UNKNOWN
     Route: 065
     Dates: end: 20180619
  7. BACTRIM [Suspect]
     Active Substance: SULFAMETHOXAZOLE\TRIMETHOPRIM
     Dosage: 160.0MG UNKNOWN
     Route: 048
     Dates: start: 20180615, end: 20180618
  8. MST CONTINUS [Concomitant]
     Active Substance: MORPHINE SULFATE
  9. BARACLUDE [Concomitant]
     Active Substance: ENTECAVIR
     Dates: start: 20180614
  10. CIPROFLOXACIN. [Suspect]
     Active Substance: CIPROFLOXACIN
     Dosage: 500.0MG UNKNOWN
     Route: 048
     Dates: start: 20180615, end: 20180619
  11. ONDANSETRON [Suspect]
     Active Substance: ONDANSETRON
     Dosage: 8 MG IN TOTAL
     Route: 048
     Dates: start: 20180619, end: 20180619
  12. GABAPENTIN. [Concomitant]
     Active Substance: GABAPENTIN
  13. CALCIMAGON D3 [Concomitant]
     Active Substance: CALCIUM\CHOLECALCIFEROL
  14. CHOP [Concomitant]
     Active Substance: CYCLOPHOSPHAMIDE\DOXORUBICIN\PREDNISONE\VINCRISTINE
     Dosage: CYCLICAL
     Dates: start: 20180618
  15. METHADONE [Suspect]
     Active Substance: METHADONE HYDROCHLORIDE
     Indication: DRUG ABUSE
     Dosage: 150 MG MAX 2X/WEEK ; AS NECESSARY UNKNOWN
     Route: 048
     Dates: end: 20180619
  16. METHADONE [Suspect]
     Active Substance: METHADONE HYDROCHLORIDE
     Indication: DRUG ABUSE
     Dosage: 150 MG IN TOTAL UNKNOWN
     Route: 048
     Dates: start: 20180618, end: 20180618
  17. RITUXIMAB. [Concomitant]
     Active Substance: RITUXIMAB
     Dosage: IN TOTAL
     Dates: start: 20180613, end: 20180613
  18. METHADONE [Suspect]
     Active Substance: METHADONE HYDROCHLORIDE
     Indication: DRUG ABUSE
     Dosage: 150.0MG UNKNOWN
     Route: 048
  19. SAROTEN [Suspect]
     Active Substance: AMITRIPTYLINE
     Dosage: 75.0MG UNKNOWN
     Route: 048
     Dates: start: 20180611, end: 20180619
  20. SIRDALUD [Concomitant]
     Active Substance: TIZANIDINE
     Dates: end: 201806
  21. RIVOTRIL [Concomitant]
     Active Substance: CLONAZEPAM
     Dates: start: 20180613
  22. VALTREX [Concomitant]
     Active Substance: VALACYCLOVIR HYDROCHLORIDE
  23. METHADONE [Suspect]
     Active Substance: METHADONE HYDROCHLORIDE
     Indication: DRUG ABUSE
     Dosage: 150 MG IN TOTAL UNKNOWN
     Route: 048
     Dates: start: 20180616, end: 20180616
  24. ZYLORIC [Concomitant]
     Active Substance: ALLOPURINOL
     Dates: start: 20180613

REACTIONS (1)
  - Electrocardiogram QT prolonged [Not Recovered/Not Resolved]

NARRATIVE: CASE EVENT DATE: 20180619
